FAERS Safety Report 10524597 (Version 1)
Quarter: 2014Q4

REPORT INFORMATION
  Report Type: Spontaneous
  Country: US (occurrence: None)
  Receive Date: 20141015
  Receipt Date: 20141015
  Transmission Date: 20150528
  Serious: No
  Sender: FDA-Public Use
  Company Number: None

PATIENT
  Age: 66 Year
  Sex: Male
  Weight: 99.79 kg

DRUGS (1)
  1. ANDROGEL [Suspect]
     Active Substance: TESTOSTERONE
     Indication: BLOOD TESTOSTERONE DECREASED
     Dosage: TESTOSTERONE ONCE DAILY APPLIED TO A SURFACE USUALLY THE SKIN
     Dates: start: 20140926, end: 20141010

REACTIONS (1)
  - Anger [None]

NARRATIVE: CASE EVENT DATE: 20140926
